FAERS Safety Report 9478000 (Version 3)
Quarter: 2014Q3

REPORT INFORMATION
  Report Type: Spontaneous
  Country: US (occurrence: None)
  Receive Date: 20130915
  Receipt Date: 20140915
  Transmission Date: 20150326
  Serious: Yes (Hospitalization, Other)
  Sender: FDA-Public Use
  Company Number: JPI-P-034477

PATIENT
  Age: 42 Year
  Sex: Female
  Weight: 116.1 kg

DRUGS (2)
  1. XYREM [Suspect]
     Active Substance: SODIUM OXYBATE
     Indication: NARCOLEPSY
     Route: 048
     Dates: start: 20070913, end: 2007
  2. XYREM [Suspect]
     Active Substance: SODIUM OXYBATE
     Indication: CATAPLEXY
     Route: 048
     Dates: start: 20070913, end: 2007

REACTIONS (14)
  - Suicidal ideation [None]
  - Disturbance in attention [None]
  - Dizziness [None]
  - Paraesthesia [None]
  - Condition aggravated [None]
  - Disorientation [None]
  - Abdominal pain upper [None]
  - Convulsion [None]
  - Tremor [None]
  - Nausea [None]
  - Speech disorder [None]
  - Dissociative identity disorder [None]
  - Diarrhoea [None]
  - Emotional disorder [None]
